FAERS Safety Report 19462720 (Version 3)
Quarter: 2022Q2

REPORT INFORMATION
  Report Type: Report from Study
  Country: DE (occurrence: DE)
  Receive Date: 20210625
  Receipt Date: 20220427
  Transmission Date: 20220721
  Serious: No
  Sender: FDA-Public Use
  Company Number: DE-JNJFOC-20210624291

PATIENT

DRUGS (4)
  1. GUSELKUMAB [Suspect]
     Active Substance: GUSELKUMAB
     Indication: Psoriasis
     Route: 065
  2. GUSELKUMAB [Suspect]
     Active Substance: GUSELKUMAB
  3. GUSELKUMAB [Suspect]
     Active Substance: GUSELKUMAB
  4. GUSELKUMAB [Suspect]
     Active Substance: GUSELKUMAB

REACTIONS (1)
  - Syringe issue [Unknown]
